FAERS Safety Report 11910144 (Version 1)
Quarter: 2016Q1

REPORT INFORMATION
  Report Type: Spontaneous
  Country: US (occurrence: US)
  Receive Date: 20160112
  Receipt Date: 20160112
  Transmission Date: 20160526
  Serious: No
  Sender: FDA-Public Use
  Company Number: US-PFIZER INC-2015464700

PATIENT
  Age: 48 Year

DRUGS (1)
  1. LYRICA [Suspect]
     Active Substance: PREGABALIN

REACTIONS (6)
  - Malaise [Unknown]
  - Asthma [Unknown]
  - Disease recurrence [Unknown]
  - Wheezing [Unknown]
  - Disturbance in attention [Unknown]
  - Speech disorder [Unknown]

NARRATIVE: CASE EVENT DATE: 20151218
